FAERS Safety Report 7554664-4 (Version None)
Quarter: 2011Q2

REPORT INFORMATION
  Report Type: 
  Country: None (occurrence: None)
  Receive Date: 20110610
  Receipt Date: 20110526
  Transmission Date: 20111010
  Serious: Yes (Hospitalization, Other)
  Sender: FDA-Public Use
  Company Number: AUR-APL-2011-02208

PATIENT
  Age: 66 Year
  Sex: Male

DRUGS (7)
  1. TEVETEN HCT [Concomitant]
  2. ASPIRIN [Suspect]
     Indication: TYPE 2 DIABETES MELLITUS
     Dosage: ORAL
     Route: 048
  3. LEVOTHYROXINE SODIUM [Concomitant]
  4. GLIMEPIRIDE [Suspect]
     Indication: TYPE 2 DIABETES MELLITUS
  5. SAXAGLIPTIN/PLACEBO [Suspect]
  6. METFORMIN HCL [Suspect]
     Indication: TYPE 2 DIABETES MELLITUS
  7. AMLODIPINE [Concomitant]

REACTIONS (5)
  - MELAENA [None]
  - HAEMATEMESIS [None]
  - AORTIC ANEURYSM [None]
  - ANAEMIA [None]
  - GASTRIC ULCER [None]
